FAERS Safety Report 15253471 (Version 2)
Quarter: 2018Q3

REPORT INFORMATION
  Report Type: Spontaneous
  Country: JP (occurrence: JP)
  Receive Date: 20180808
  Receipt Date: 20180919
  Transmission Date: 20181010
  Serious: Yes (Hospitalization)
  Sender: FDA-Public Use
  Company Number: JP-ROCHE-2166821

PATIENT
  Age: 64 Year
  Sex: Female

DRUGS (4)
  1. ACTEMRA [Suspect]
     Active Substance: TOCILIZUMAB
     Indication: RHEUMATOID ARTHRITIS
     Dosage: ON 20/APR/2016, RECEIVED MOST RECENT DOSE OF TOCILIZUMAB
     Route: 041
     Dates: start: 20150610
  2. METOLATE [Concomitant]
     Active Substance: METHOTREXATE
     Route: 048
  3. FOLIAMIN [Concomitant]
     Active Substance: FOLIC ACID
     Dosage: DOSAGE IS UNCERTAIN.
     Route: 065
  4. ACTEMRA [Suspect]
     Active Substance: TOCILIZUMAB
     Dosage: ON 27/JUN/2018, RECEIVED MOST RECENT DOSE OF TOCILIZUMAB
     Route: 041
     Dates: start: 20160421

REACTIONS (1)
  - Breast cancer [Recovered/Resolved]

NARRATIVE: CASE EVENT DATE: 201802
